FAERS Safety Report 24966766 (Version 1)
Quarter: 2025Q1

REPORT INFORMATION
  Report Type: Report from Study
  Country: US (occurrence: US)
  Receive Date: 20250213
  Receipt Date: 20250213
  Transmission Date: 20250408
  Serious: Yes (Other)
  Sender: ALEXION PHARMACEUTICALS
  Company Number: US-AstraZeneca-2019SE29207

PATIENT
  Age: 66 Year
  Weight: 71.668 kg

DRUGS (5)
  1. ESOMEPRAZOLE [Suspect]
     Active Substance: ESOMEPRAZOLE
  2. DAPAGLIFLOZIN [Suspect]
     Active Substance: DAPAGLIFLOZIN
     Indication: Blood glucose increased
  3. TAMIFLU [Concomitant]
     Active Substance: OSELTAMIVIR PHOSPHATE
     Indication: Influenza
  4. UNSPECIFIED INGREDIENT [Concomitant]
     Active Substance: UNSPECIFIED INGREDIENT
  5. CHOLESTEROL [Concomitant]
     Active Substance: CHOLESTEROL

REACTIONS (6)
  - Pollakiuria [Unknown]
  - Influenza [Unknown]
  - Cataract [Unknown]
  - Frequent bowel movements [Unknown]
  - Flatulence [Unknown]
  - Hypoacusis [Unknown]
